FAERS Safety Report 16004711 (Version 1)
Quarter: 2019Q1

REPORT INFORMATION
  Report Type: Spontaneous
  Country: US (occurrence: US)
  Receive Date: 20190225
  Receipt Date: 20190225
  Transmission Date: 20190418
  Serious: Yes (Other)
  Sender: FDA-Public Use
  Company Number: None

PATIENT
  Age: 57 Year
  Sex: Female
  Weight: 83.8 kg

DRUGS (1)
  1. YESCARTA [Suspect]
     Active Substance: AXICABTAGENE CILOLEUCEL
     Indication: LYMPHOMA
     Dosage: ?          OTHER FREQUENCY:ONCE ON 1/9/2019;?
     Route: 041
     Dates: start: 20190109, end: 20190109

REACTIONS (2)
  - Blood culture [None]
  - Cardiorenal syndrome [None]

NARRATIVE: CASE EVENT DATE: 20190109
